FAERS Safety Report 9548722 (Version 1)
Quarter: 2013Q3

REPORT INFORMATION
  Report Type: Spontaneous
  Country: US (occurrence: None)
  Receive Date: 20130923
  Receipt Date: 20130923
  Transmission Date: 20140515
  Serious: Yes (Life-Threatening, Hospitalization, Disabling)
  Sender: FDA-Public Use
  Company Number: None

PATIENT
  Sex: 0

DRUGS (1)
  1. ABILIFY [Suspect]

REACTIONS (8)
  - Fall [None]
  - Head injury [None]
  - Tremor [None]
  - Muscular weakness [None]
  - Impaired driving ability [None]
  - Dysgraphia [None]
  - Parkinsonism [None]
  - Gait disturbance [None]
